FAERS Safety Report 5459822-0 (Version None)
Quarter: 2007Q3

REPORT INFORMATION
  Report Type: 
  Country: None (occurrence: None)
  Receive Date: 20070919
  Receipt Date: 20070910
  Transmission Date: 20080115
  Serious: Yes (Other)
  Sender: FDA-Public Use
  Company Number: PHBS2007JP15042

PATIENT
  Age: 62 Year
  Sex: Male

DRUGS (1)
  1. LOCHOL [Suspect]
     Dosage: 20 MG, QD
     Route: 048
     Dates: start: 20060701, end: 20060901

REACTIONS (1)
  - LIVER DISORDER [None]
